FAERS Safety Report 14316016 (Version 1)
Quarter: 2017Q4

REPORT INFORMATION
  Report Type: Spontaneous
  Country: US (occurrence: US)
  Receive Date: 20171221
  Receipt Date: 20171221
  Transmission Date: 20180321
  Serious: Yes (Other)
  Sender: FDA-Public Use
  Company Number: US-TEVA-2017-US-836486

PATIENT
  Age: 31 Year
  Sex: Female
  Weight: 66 kg

DRUGS (3)
  1. PARAGARD T 380A [Suspect]
     Active Substance: COPPER
     Indication: CONTRACEPTION
     Dates: start: 20160121, end: 20171211
  2. CHANTIX [Concomitant]
     Active Substance: VARENICLINE TARTRATE
     Indication: SMOKING CESSATION THERAPY
  3. PHENTERMINE. [Concomitant]
     Active Substance: PHENTERMINE
     Indication: WEIGHT CONTROL

REACTIONS (2)
  - Vaginal haemorrhage [Unknown]
  - Device dislocation [Recovered/Resolved]

NARRATIVE: CASE EVENT DATE: 20171211
